FAERS Safety Report 6296631-7 (Version None)
Quarter: 2009Q3

REPORT INFORMATION
  Report Type: 
  Country: None (occurrence: None)
  Receive Date: 20090804
  Receipt Date: 20090727
  Transmission Date: 20100115
  Serious: Yes (Hospitalization)
  Sender: FDA-Public Use
  Company Number: BE-PFIZER INC-2009245914

PATIENT
  Age: 67 Year

DRUGS (1)
  1. CELEBREX [Suspect]
     Indication: POLYARTHRITIS
     Dosage: 100 MG, 1X/DAY
     Route: 048
     Dates: end: 20090713

REACTIONS (3)
  - ARRHYTHMIA [None]
  - ARRHYTHMIA SUPRAVENTRICULAR [None]
  - VENTRICULAR ARRHYTHMIA [None]
